FAERS Safety Report 9898184 (Version 1)
Quarter: 2014Q1

REPORT INFORMATION
  Report Type: Spontaneous
  Country: US (occurrence: US)
  Receive Date: 20140214
  Receipt Date: 20140214
  Transmission Date: 20141002
  Serious: No
  Sender: FDA-Public Use
  Company Number: US-009507513-1402USA007219

PATIENT
  Sex: Female

DRUGS (1)
  1. LOTRIMIN AF LIQUID SPRAY [Suspect]
     Indication: BREAST DISCOMFORT
     Dosage: UNK, UNKNOWN
     Route: 061
     Dates: start: 201307

REACTIONS (1)
  - Drug administered at inappropriate site [Unknown]
